FAERS Safety Report 10179410 (Version 1)
Quarter: 2014Q2

REPORT INFORMATION
  Report Type: Spontaneous
  Country: US (occurrence: US)
  Receive Date: 20140519
  Receipt Date: 20140519
  Transmission Date: 20141212
  Serious: Yes (Other)
  Sender: FDA-Public Use
  Company Number: US-SA-2014SA061244

PATIENT
  Age: 63 Year
  Sex: Female

DRUGS (5)
  1. LANTUS SOLOSTAR [Suspect]
     Indication: DIABETES MELLITUS
     Dosage: DOSE:28 UNIT(S)
     Route: 065
  2. LANTUS SOLOSTAR [Suspect]
     Indication: DIABETES MELLITUS
     Dosage: DOSE:28 UNIT(S)
     Route: 065
  3. SOLOSTAR [Concomitant]
  4. JANUMET [Concomitant]
  5. GLIPIZIDE [Concomitant]

REACTIONS (3)
  - Barrett^s oesophagus [Unknown]
  - Blood glucose increased [Unknown]
  - Drug dose omission [Unknown]
